FAERS Safety Report 4296028-5 (Version None)
Quarter: 2004Q1

REPORT INFORMATION
  Report Type: 
  Country: None (occurrence: None)
  Receive Date: 20040212
  Receipt Date: 20040203
  Transmission Date: 20041129
  Serious: Yes (Other)
  Sender: FDA-Public Use
  Company Number: 2004-00515

PATIENT
  Age: 73 Year
  Sex: Male

DRUGS (3)
  1. FLUOROURACIL [Suspect]
     Indication: COLON CANCER
     Dosage: SEE IMAGE
     Route: 042
  2. LEUCOVORIN CALCIUM [Concomitant]
  3. OXALIPLATIN (OXALIPLATIN) [Concomitant]

REACTIONS (1)
  - VASCULITIS GASTROINTESTINAL [None]
